FAERS Safety Report 9780590 (Version 2)
Quarter: 2013Q4

REPORT INFORMATION
  Report Type: Spontaneous
  Country: US (occurrence: US)
  Receive Date: 20131224
  Receipt Date: 20131224
  Transmission Date: 20140711
  Serious: Yes (Other)
  Sender: FDA-Public Use
  Company Number: US-RB-061138-13

PATIENT
  Sex: Female

DRUGS (1)
  1. MUCINEX FAST MAX SEVERE CONGESTION COUGH LIQUID [Suspect]
     Indication: COUGH
     Dosage: PATIENT TOOK 20 ML OF THE DRUG 1 TIME AT 10:00 P.M. ON 08-DEC-2013.
     Route: 048
     Dates: start: 20131208

REACTIONS (2)
  - Restlessness [Not Recovered/Not Resolved]
  - Drug ineffective [Not Recovered/Not Resolved]
